FAERS Safety Report 24941447 (Version 1)
Quarter: 2025Q1

REPORT INFORMATION
  Report Type: Spontaneous
  Country: FR (occurrence: FR)
  Receive Date: 20250207
  Receipt Date: 20250207
  Transmission Date: 20250408
  Serious: Yes (Death, Life-Threatening, Hospitalization)
  Sender: MYLAN
  Company Number: FR-MYLANLABS-2025M1008722

PATIENT
  Age: 39 Year
  Sex: Male

DRUGS (6)
  1. CYAMEMAZINE [Suspect]
     Active Substance: CYAMEMAZINE
     Indication: Schizophrenia
     Route: 065
  2. NOREPINEPHRINE [Suspect]
     Active Substance: NOREPINEPHRINE
     Indication: Hypotension
     Route: 065
  3. HALOPERIDOL [Suspect]
     Active Substance: HALOPERIDOL
     Indication: Schizophrenia
     Route: 065
  4. DANTROLENE [Suspect]
     Active Substance: DANTROLENE
     Indication: Hyperthermia
     Route: 065
  5. CEFTRIAXONE [Concomitant]
     Active Substance: CEFTRIAXONE
     Indication: Evidence based treatment
     Route: 065
  6. ETOMIDATE [Concomitant]
     Active Substance: ETOMIDATE
     Indication: Sedative therapy
     Route: 065

REACTIONS (16)
  - Shock [Fatal]
  - Multiple organ dysfunction syndrome [Fatal]
  - Drug ineffective [Fatal]
  - Coma [Unknown]
  - Haemodynamic instability [Unknown]
  - Hyperthermia [Unknown]
  - Hypotension [Unknown]
  - Disseminated intravascular coagulation [Unknown]
  - Renal failure [Unknown]
  - Rhabdomyolysis [Unknown]
  - Hepatic cytolysis [Unknown]
  - Hyperkalaemia [Unknown]
  - Hyperglycaemia [Unknown]
  - Metabolic acidosis [Unknown]
  - Mydriasis [Recovering/Resolving]
  - Blood disorder [Unknown]
